FAERS Safety Report 8223839-3 (Version None)
Quarter: 2012Q1

REPORT INFORMATION
  Report Type: 
  Country: None (occurrence: None)
  Receive Date: 20120321
  Receipt Date: 20120316
  Transmission Date: 20120608
  Serious: Yes (Other)
  Sender: FDA-Public Use
  Company Number: US-TEVA-292273USA

PATIENT
  Sex: Female

DRUGS (1)
  1. CLONAZEPAM [Suspect]

REACTIONS (3)
  - PAIN IN JAW [None]
  - DYSKINESIA [None]
  - HEADACHE [None]
